FAERS Safety Report 24412511 (Version 1)
Quarter: 2024Q4

REPORT INFORMATION
  Report Type: Report from Study
  Country: US (occurrence: US)
  Receive Date: 20241008
  Receipt Date: 20241008
  Transmission Date: 20250114
  Serious: Yes (Death, Other)
  Sender: BAYER
  Company Number: US-BAYER-2024A139701

PATIENT
  Age: 68 Year
  Sex: Female

DRUGS (1)
  1. STIVARGA [Suspect]
     Active Substance: REGORAFENIB MONOHYDRATE
     Dosage: UNK
     Dates: start: 202403

REACTIONS (4)
  - Death [Fatal]
  - Gait inability [None]
  - Contusion [None]
  - Skin exfoliation [None]

NARRATIVE: CASE EVENT DATE: 20240919
